FAERS Safety Report 4341251-4 (Version None)
Quarter: 2004Q1

REPORT INFORMATION
  Report Type: 
  Country: None (occurrence: None)
  Receive Date: 20040329
  Receipt Date: 20031201
  Transmission Date: 20041129
  Serious: No
  Sender: FDA-Public Use
  Company Number: 03P-163-0243098-00

PATIENT
  Age: 77 Year
  Sex: Female

DRUGS (7)
  1. HUMIRA [Suspect]
     Indication: RHEUMATOID ARTHRITIS
     Dosage: 40 MG, 1 IN 2 WK, SUBCUTANEOUS
     Route: 058
     Dates: start: 20030501
  2. TRAMADOL HCL [Concomitant]
  3. DIGOXIN [Concomitant]
  4. RAMIPRIL [Concomitant]
  5. LEFLUNOMIDE [Concomitant]
  6. PREDNISONE [Concomitant]
  7. ESTRADIOL [Concomitant]

REACTIONS (1)
  - DRUG INEFFECTIVE [None]
